FAERS Safety Report 4482301-4 (Version None)
Quarter: 2004Q4

REPORT INFORMATION
  Report Type: 
  Country: None (occurrence: None)
  Receive Date: 20041022
  Receipt Date: 20041008
  Transmission Date: 20050328
  Serious: Yes (Hospitalization)
  Sender: FDA-Public Use
  Company Number: US-MERCK-0410USA01796

PATIENT
  Age: 73 Year
  Sex: Female

DRUGS (13)
  1. FOSAMAX [Suspect]
     Indication: OSTEOPOROSIS
     Route: 048
     Dates: start: 19990101, end: 20000101
  2. FOSAMAX [Suspect]
     Route: 048
     Dates: start: 20000401
  3. FOSAMAX [Suspect]
     Route: 048
     Dates: start: 20040101
  4. FOSAMAX [Suspect]
     Route: 048
     Dates: end: 20040601
  5. CALCIUM CITRATE [Concomitant]
     Route: 065
  6. VITAMIN D (UNSPECIFIED) [Concomitant]
     Route: 065
  7. MAGNESIUM (UNSPECIFIED) [Concomitant]
     Route: 065
  8. FOLIC ACID [Concomitant]
     Route: 065
  9. PYRIDOXINE [Concomitant]
     Route: 065
  10. ASCORBIC ACID [Concomitant]
     Route: 065
  11. VITAMINS (UNSPECIFIED) [Concomitant]
     Route: 065
  12. TRIAMTERENE [Concomitant]
     Route: 065
     Dates: start: 20000101
  13. HYDROCHLOROTHIAZIDE [Concomitant]
     Route: 065
     Dates: start: 20000101

REACTIONS (1)
  - ASEPTIC NECROSIS BONE [None]
